FAERS Safety Report 8031260-6 (Version None)
Quarter: 2012Q1

REPORT INFORMATION
  Report Type: 
  Country: None (occurrence: None)
  Receive Date: 20120109
  Receipt Date: 20120105
  Transmission Date: 20120608
  Serious: Yes (Hospitalization, Other)
  Sender: FDA-Public Use
  Company Number: US-MERCK-1106USA03369

PATIENT
  Age: 62 Year
  Sex: Female

DRUGS (11)
  1. FOSAMAX [Suspect]
     Indication: OSTEOPOROSIS
     Route: 048
     Dates: start: 20040101, end: 20041201
  2. VITAMINS (UNSPECIFIED) [Concomitant]
     Route: 065
     Dates: start: 20000101
  3. FOSAMAX [Suspect]
     Route: 048
     Dates: start: 19990901, end: 20031201
  4. FOSAMAX [Suspect]
     Indication: OSTEOPENIA
     Route: 048
     Dates: start: 20040101, end: 20041201
  5. FOSAMAX [Suspect]
     Route: 048
     Dates: start: 20050101, end: 20080301
  6. FOSAMAX [Suspect]
     Route: 048
     Dates: start: 19990901, end: 20031201
  7. ALENDRONATE SODIUM [Suspect]
     Indication: OSTEOPENIA
     Route: 048
     Dates: start: 20080401, end: 20091201
  8. FOSAMAX [Suspect]
     Route: 048
     Dates: start: 20050101, end: 20080301
  9. VITAMIN D (UNSPECIFIED) [Concomitant]
     Route: 065
     Dates: start: 19970101
  10. CALCIUM (UNSPECIFIED) [Concomitant]
     Route: 065
     Dates: start: 19950901
  11. ALENDRONATE SODIUM [Suspect]
     Indication: OSTEOPOROSIS
     Route: 048
     Dates: start: 20080401, end: 20091201

REACTIONS (9)
  - DEVICE FAILURE [None]
  - LOW TURNOVER OSTEOPATHY [None]
  - SPINAL DISORDER [None]
  - FRACTURE NONUNION [None]
  - FOOT FRACTURE [None]
  - INTERVERTEBRAL DISC DISORDER [None]
  - FEMUR FRACTURE [None]
  - CATARACT [None]
  - RIB FRACTURE [None]
